FAERS Safety Report 5996416-2 (Version None)
Quarter: 2008Q4

REPORT INFORMATION
  Report Type: 
  Country: None (occurrence: None)
  Receive Date: 20081212
  Receipt Date: 20081016
  Transmission Date: 20090506
  Serious: No
  Sender: FDA-Public Use
  Company Number: US-ABBOTT-08P-163-0482280-00

PATIENT
  Sex: Female

DRUGS (2)
  1. HUMIRA [Suspect]
     Indication: POLYARTHRITIS
     Route: 058
     Dates: end: 20080426
  2. HUMIRA [Suspect]
     Indication: UVEITIS

REACTIONS (2)
  - HYPOAESTHESIA [None]
  - PARAESTHESIA [None]
